FAERS Safety Report 19164377 (Version 3)
Quarter: 2021Q2

REPORT INFORMATION
  Report Type: Report from Study
  Country: CO (occurrence: CO)
  Receive Date: 20210421
  Receipt Date: 20210526
  Transmission Date: 20210717
  Serious: Yes (Other)
  Sender: FDA-Public Use
  Company Number: NVSC2019CO068309

PATIENT
  Age: 48 Year
  Sex: Female
  Weight: 53 kg

DRUGS (9)
  1. MEKINIST [Suspect]
     Active Substance: TRAMETINIB DIMETHYL SULFOXIDE
     Indication: METASTATIC MALIGNANT MELANOMA
     Dosage: 2 MG, QD
     Route: 048
  2. TAFINLAR [Suspect]
     Active Substance: DABRAFENIB MESYLATE
     Dosage: 150 MG/2 OF 75MG, Q12H (EVER 12 HOURS IN THE MORNING AND AT NIGHT)
     Route: 048
     Dates: start: 20181229
  3. LEVOTHYROXINE SODIUM. [Concomitant]
     Active Substance: LEVOTHYROXINE SODIUM
     Indication: THYROID DISORDER
     Dosage: 88 MG, QD
     Route: 048
  4. MEKINIST [Suspect]
     Active Substance: TRAMETINIB DIMETHYL SULFOXIDE
     Dosage: 2 MG, QD
     Route: 048
     Dates: start: 20181229
  5. MEKINIST [Suspect]
     Active Substance: TRAMETINIB DIMETHYL SULFOXIDE
     Dosage: 2 MG, Q24H
     Route: 048
     Dates: start: 20191228
  6. TAFINLAR [Suspect]
     Active Substance: DABRAFENIB MESYLATE
     Indication: METASTATIC MALIGNANT MELANOMA
     Dosage: 150 MG, BID (FORMULATION: TABLET)
     Route: 048
  7. LEVOTHYROXINE SODIUM. [Concomitant]
     Active Substance: LEVOTHYROXINE SODIUM
     Indication: HYPOTHYROIDISM
     Dosage: 50 MG
     Route: 065
  8. ALUMINUM HYDROXIDE. [Concomitant]
     Active Substance: ALUMINUM HYDROXIDE
     Indication: DYSPEPSIA
     Dosage: ONE SPOON AS NEEDED
     Route: 065
     Dates: start: 202010
  9. TAFINLAR [Suspect]
     Active Substance: DABRAFENIB MESYLATE
     Dosage: 4 DF OF 75 MG, Q24H
     Route: 048
     Dates: start: 20191228

REACTIONS (24)
  - Discomfort [Unknown]
  - Constipation [Unknown]
  - Malignant melanoma [Unknown]
  - Dyspepsia [Unknown]
  - Fatigue [Unknown]
  - Epistaxis [Unknown]
  - Headache [Unknown]
  - Abdominal pain upper [Unknown]
  - Illness [Recovered/Resolved]
  - Inappropriate schedule of product administration [Unknown]
  - Cough [Unknown]
  - Diarrhoea [Unknown]
  - Depression [Unknown]
  - Chills [Unknown]
  - Decreased appetite [Unknown]
  - Eating disorder [Unknown]
  - Nausea [Unknown]
  - Weight decreased [Recovering/Resolving]
  - Vomiting [Unknown]
  - Abdominal discomfort [Unknown]
  - Helicobacter infection [Recovered/Resolved]
  - Pyrexia [Unknown]
  - Illness [Unknown]
  - Weight increased [Unknown]

NARRATIVE: CASE EVENT DATE: 201912
